FAERS Safety Report 5767175-3 (Version None)
Quarter: 2008Q2

REPORT INFORMATION
  Report Type: 
  Country: None (occurrence: None)
  Receive Date: 20080612
  Receipt Date: 20080605
  Transmission Date: 20081010
  Serious: Yes (Other)
  Sender: FDA-Public Use
  Company Number: US-ASTRAZENECA-2006UW21221

PATIENT
  Age: 38 Year
  Sex: Female
  Weight: 113.6 kg

DRUGS (2)
  1. SEROQUEL [Suspect]
     Indication: DEPRESSION
     Route: 048
     Dates: start: 20030101, end: 20040101
  2. SEROQUEL [Suspect]
     Indication: SLEEP DISORDER
     Route: 048
     Dates: start: 20030101, end: 20040101

REACTIONS (5)
  - BILE DUCT EXPLORATION [None]
  - BLOOD CHOLESTEROL INCREASED [None]
  - DIABETES MELLITUS [None]
  - HEADACHE [None]
  - OBESITY [None]
